FAERS Safety Report 9681893 (Version 1)
Quarter: 2013Q4

REPORT INFORMATION
  Report Type: Spontaneous
  Country: US (occurrence: US)
  Receive Date: 20131111
  Receipt Date: 20131111
  Transmission Date: 20140711
  Serious: Yes (Hospitalization, Other)
  Sender: FDA-Public Use
  Company Number: US-PFIZER INC-2013319853

PATIENT
  Age: 53 Year
  Sex: Female

DRUGS (1)
  1. DILANTIN [Suspect]
     Indication: CONVULSION
     Dosage: UNK

REACTIONS (6)
  - Uhthoff^s phenomenon [Recovered/Resolved]
  - Toxicity to various agents [Unknown]
  - Anticonvulsant drug level increased [Recovered/Resolved]
  - Asthenia [Recovered/Resolved]
  - Muscle spasticity [Recovered/Resolved]
  - Fall [Recovered/Resolved]
